FAERS Safety Report 9851944 (Version 1)
Quarter: 2014Q1

REPORT INFORMATION
  Report Type: Report from Study
  Country: DK (occurrence: DK)
  Receive Date: 20140129
  Receipt Date: 20140129
  Transmission Date: 20141002
  Serious: Yes (Hospitalization)
  Sender: FDA-Public Use
  Company Number: DK-ROCHE-1338778

PATIENT
  Age: 59 Year
  Sex: Female
  Weight: 130 kg

DRUGS (3)
  1. BEVACIZUMAB [Suspect]
     Indication: OVARIAN CANCER
     Route: 042
  2. CARBOPLATIN [Suspect]
     Indication: OVARIAN CANCER
     Dosage: MOST RECENT DOSE ON 09/DEC/2013
     Route: 042
     Dates: start: 20131209
  3. GEMCITABINE [Suspect]
     Indication: OVARIAN CANCER
     Dosage: MOST RECENT DOSE ON 16/DEC/2013.
     Route: 042
     Dates: start: 20131209

REACTIONS (1)
  - General physical health deterioration [Not Recovered/Not Resolved]
